FAERS Safety Report 25540430 (Version 1)
Quarter: 2025Q3

REPORT INFORMATION
  Report Type: Spontaneous
  Country: US (occurrence: US)
  Receive Date: 20250710
  Receipt Date: 20250710
  Transmission Date: 20251021
  Serious: No
  Sender: MADRIGAL PHARMACEUTICALS
  Company Number: US-MADRIGAL PHARMACEUTICALS, INC-2025REZ4491

PATIENT

DRUGS (12)
  1. REZDIFFRA [Suspect]
     Active Substance: RESMETIROM
     Indication: Metabolic dysfunction-associated steatohepatitis
     Dosage: 100 MILLIGRAM, QD
     Route: 048
     Dates: start: 202501
  2. REZDIFFRA [Suspect]
     Active Substance: RESMETIROM
     Indication: Hepatic steatosis
  3. LOSARTAN [Concomitant]
     Active Substance: LOSARTAN
  4. FENOFIBRATE [Concomitant]
     Active Substance: FENOFIBRATE
  5. GLIPIZIDE [Concomitant]
     Active Substance: GLIPIZIDE
  6. ROSUVASTATIN [Concomitant]
     Active Substance: ROSUVASTATIN
  7. ANASTROZOLE [Concomitant]
     Active Substance: ANASTROZOLE
  8. VITAMIN E [Concomitant]
     Active Substance: .ALPHA.-TOCOPHEROL
  9. ABILIFY [Concomitant]
     Active Substance: ARIPIPRAZOLE
     Indication: Schizophrenia
  10. INVEGA TRINZA [Concomitant]
     Active Substance: PALIPERIDONE PALMITATE
  11. PIOGLITAZONE [Concomitant]
     Active Substance: PIOGLITAZONE
  12. MOUNJARO [Concomitant]
     Active Substance: TIRZEPATIDE

REACTIONS (1)
  - Diarrhoea [Not Recovered/Not Resolved]
